FAERS Safety Report 4296456-8 (Version None)
Quarter: 2004Q1

REPORT INFORMATION
  Report Type: 
  Country: None (occurrence: None)
  Receive Date: 20040122
  Receipt Date: 20031107
  Transmission Date: 20041129
  Serious: Yes (Other)
  Sender: FDA-Public Use
  Company Number: 2003041391

PATIENT
  Age: 22 Year
  Sex: Female
  Weight: 67.586 kg

DRUGS (5)
  1. RELPAX [Suspect]
     Indication: MIGRAINE
     Dosage: 40 MG (DAILY), ORAL
     Route: 048
     Dates: start: 20030925, end: 20030925
  2. LEVOTHYROXINE SODIUM [Concomitant]
  3. TRIAMCINOLONE ACETONIDE [Concomitant]
  4. LEVOTHYROXINE SODIUM [Concomitant]
  5. ORAL CONTRACEPTIVE NOS (ORAL CONTRACEPTIVE NOS) [Concomitant]

REACTIONS (5)
  - CHEST PAIN [None]
  - GLOSSODYNIA [None]
  - NECK PAIN [None]
  - PAIN IN JAW [None]
  - PHARYNGOLARYNGEAL PAIN [None]
